FAERS Safety Report 24918937 (Version 4)
Quarter: 2025Q3

REPORT INFORMATION
  Report Type: Report from Study
  Country: US (occurrence: US)
  Receive Date: 20250204
  Receipt Date: 20250708
  Transmission Date: 20251021
  Serious: Yes (Other)
  Sender: EXELIXIS
  Company Number: US-EXELIXIS-EXL-2025-004458

PATIENT
  Sex: Male

DRUGS (4)
  1. CABOMETYX [Suspect]
     Active Substance: CABOZANTINIB S-MALATE
     Indication: Squamous cell carcinoma of skin
     Dosage: 60 MG, QD (TAKE 3 TABLETS OF 20 MG)
     Route: 048
     Dates: start: 20250102
  2. CABOMETYX [Suspect]
     Active Substance: CABOZANTINIB S-MALATE
  3. CABOMETYX [Suspect]
     Active Substance: CABOZANTINIB S-MALATE
     Dosage: 20 MG, QD
     Route: 048
  4. CABOMETYX [Suspect]
     Active Substance: CABOZANTINIB S-MALATE
     Dosage: 60 MG, QD (TAKE 3 TABLETS OF 20 MG)
     Route: 048

REACTIONS (15)
  - Neuropathy peripheral [Not Recovered/Not Resolved]
  - Limb discomfort [Unknown]
  - Radiotherapy to oral cavity [Unknown]
  - Wound [Unknown]
  - Drug intolerance [Unknown]
  - Blister [Unknown]
  - Thyroid disorder [Unknown]
  - Muscle spasms [Unknown]
  - Skin exfoliation [Unknown]
  - Fatigue [Unknown]
  - Drug ineffective for unapproved indication [Unknown]
  - Hypoaesthesia oral [Unknown]
  - Pollakiuria [Unknown]
  - Pain of skin [Unknown]
  - Skin fissures [Unknown]
